FAERS Safety Report 14851044 (Version 1)
Quarter: 2018Q2

REPORT INFORMATION
  Report Type: Spontaneous
  Country: GB (occurrence: GB)
  Receive Date: 20180507
  Receipt Date: 20180507
  Transmission Date: 20180711
  Serious: Yes (Disabling)
  Sender: FDA-Public Use
  Company Number: GB-AMGEN-GBRSP2018059376

PATIENT
  Age: 7 Year
  Sex: Male

DRUGS (2)
  1. AMLODIPINE MESILATE [Concomitant]
     Active Substance: AMLODIPINE MESYLATE
  2. PROLIA [Suspect]
     Active Substance: DENOSUMAB
     Indication: OSTEOPOROSIS
     Dosage: 60 MG, UNK
     Route: 058

REACTIONS (1)
  - Blister [Recovered/Resolved]
